FAERS Safety Report 4383666-4 (Version None)
Quarter: 2004Q2

REPORT INFORMATION
  Report Type: 
  Country: None (occurrence: None)
  Receive Date: 20040623
  Receipt Date: 20040610
  Transmission Date: 20050107
  Serious: Yes (Hospitalization)
  Sender: FDA-Public Use
  Company Number: 368537

PATIENT
  Age: 77 Year
  Sex: Male

DRUGS (10)
  1. ARTIST [Suspect]
     Indication: CARDIAC FAILURE
     Route: 048
     Dates: start: 20040308
  2. DICHLOTRIDE [Concomitant]
     Dates: start: 20040316
  3. RHYTHMY [Concomitant]
  4. DEPAS [Concomitant]
  5. ASPIRIN [Concomitant]
  6. RENIVACE [Concomitant]
  7. LASIX [Concomitant]
  8. MARZULENE [Concomitant]
  9. MAGNESIUM OXIDE [Concomitant]
  10. ALOSENN [Concomitant]

REACTIONS (5)
  - BLOOD PRESSURE DECREASED [None]
  - COLD SWEAT [None]
  - DEPRESSED LEVEL OF CONSCIOUSNESS [None]
  - LOSS OF CONSCIOUSNESS [None]
  - ORTHOSTATIC HYPOTENSION [None]
